FAERS Safety Report 7180850-1 (Version None)
Quarter: 2010Q4

REPORT INFORMATION
  Report Type: 
  Country: None (occurrence: None)
  Receive Date: 20101221
  Receipt Date: 20100413
  Transmission Date: 20110411
  Serious: No
  Sender: FDA-Public Use
  Company Number: US-AMGEN-KDL405860

PATIENT

DRUGS (10)
  1. ENBREL [Suspect]
     Indication: PRODUCT USED FOR UNKNOWN INDICATION
     Dosage: 50 MG, QWK
     Route: 058
  2. METHOTREXATE [Concomitant]
     Dosage: 2.5 MG, UNK
  3. PREDNISONE [Concomitant]
     Dosage: 1 MG, UNK
  4. NAPROXEN [Concomitant]
     Dosage: 250 MG, UNK
  5. METFORMIN HCL [Concomitant]
     Dosage: 500 MG, UNK
  6. IBUPROFEN [Concomitant]
     Dosage: 200 MG, UNK
  7. FOLIC ACID [Concomitant]
     Dosage: 1 MG, UNK
  8. RANITIDINE [Concomitant]
     Dosage: 150 MG, UNK
  9. CALCIUM WITH VITAMIN D [Concomitant]
     Dosage: UNK UNK, UNK
  10. DEXTROPROPOXYPHENE [Concomitant]
     Dosage: UNK UNK, UNK

REACTIONS (1)
  - PAIN IN EXTREMITY [None]
